FAERS Safety Report 22220874 (Version 2)
Quarter: 2023Q2

REPORT INFORMATION
  Report Type: Spontaneous
  Country: US (occurrence: None)
  Receive Date: 20230418
  Receipt Date: 20230505
  Transmission Date: 20230721
  Serious: No
  Sender: FDA-Public Use
  Company Number: 2023A070217

PATIENT
  Sex: Female

DRUGS (5)
  1. FASENRA [Suspect]
     Active Substance: BENRALIZUMAB
     Indication: Asthma
     Dosage: EVERY 4 WEEKS FOR FIRST 3 DOSES THAN EVERY 8 WEEKS THEREAFTER
     Route: 058
     Dates: start: 20230228
  2. BREZTRI [Suspect]
     Active Substance: BUDESONIDE\FORMOTEROL\GLYCOPYRROLATE
     Indication: Asthma
     Dosage: 2 PUFFS TWICE A DAY
     Route: 055
  3. DALIRESP [Concomitant]
     Active Substance: ROFLUMILAST
     Indication: Asthma
     Route: 048
  4. PRILOSEC [Concomitant]
     Active Substance: OMEPRAZOLE MAGNESIUM
  5. PREDNISONE [Concomitant]
     Active Substance: PREDNISONE

REACTIONS (5)
  - Middle insomnia [Not Recovered/Not Resolved]
  - Chest discomfort [Not Recovered/Not Resolved]
  - Dyspnoea [Not Recovered/Not Resolved]
  - Therapeutic response shortened [Not Recovered/Not Resolved]
  - Drug ineffective [Recovered/Resolved]
